FAERS Safety Report 9632906 (Version 2)
Quarter: 2013Q4

REPORT INFORMATION
  Report Type: Spontaneous
  Country: DE (occurrence: DE)
  Receive Date: 20131018
  Receipt Date: 20131021
  Transmission Date: 20140711
  Serious: Yes (Death, Hospitalization)
  Sender: FDA-Public Use
  Company Number: DE-B.I. PHARMACEUTICALS,INC./RIDGEFIELD-2013-BI-32981DE

PATIENT
  Age: 78 Year
  Sex: Male
  Weight: 80 kg

DRUGS (5)
  1. PRADAXA [Suspect]
     Indication: ATRIAL FIBRILLATION
  2. PRADAXA [Suspect]
     Indication: HIP ARTHROPLASTY
  3. PRADAXA [Suspect]
     Indication: KNEE ARTHROPLASTY
  4. HEPARIN [Suspect]
  5. ANTIBIOTICS [Concomitant]
     Indication: INFLAMMATION

REACTIONS (5)
  - Cerebrovascular accident [Fatal]
  - Pneumonia aspiration [Fatal]
  - Lymphoma [Fatal]
  - Inflammation of wound [Recovered/Resolved]
  - Drug interaction [Unknown]
